FAERS Safety Report 23851212 (Version 1)
Quarter: 2024Q2

REPORT INFORMATION
  Report Type: Spontaneous
  Country: US (occurrence: US)
  Receive Date: 20240514
  Receipt Date: 20240514
  Transmission Date: 20240715
  Serious: No
  Sender: FDA-Public Use
  Company Number: US-002147023-NVSC2024US099596

PATIENT
  Age: 52 Year
  Sex: Female
  Weight: 120 kg

DRUGS (1)
  1. MAYZENT [Suspect]
     Active Substance: SIPONIMOD
     Indication: Multiple sclerosis
     Dosage: 2 MG, QD
     Route: 048
     Dates: start: 20240313

REACTIONS (2)
  - Hot flush [Unknown]
  - Chills [Unknown]

NARRATIVE: CASE EVENT DATE: 20240313
